FAERS Safety Report 4390232-3 (Version None)
Quarter: 2004Q2

REPORT INFORMATION
  Report Type: 
  Country: None (occurrence: None)
  Receive Date: 20040630
  Receipt Date: 20040617
  Transmission Date: 20050107
  Serious: Yes (Other)
  Sender: FDA-Public Use
  Company Number: 206850

PATIENT
  Age: 50 Year
  Sex: Female
  Weight: 65 kg

DRUGS (6)
  1. MABTHERA (RITUXIMAB) CONC FOR SOLUTION FOR INFUSION [Suspect]
     Indication: RHEUMATOID ARTHRITIS
     Dosage: 1G, INTRAVENOUS
     Route: 042
     Dates: start: 20030701, end: 20030701
  2. MABTHERA (RITUXIMAB) CONC FOR SOLUTION FOR INFUSION [Suspect]
     Indication: RHEUMATOID ARTHRITIS
     Dosage: 1G, INTRAVENOUS
     Route: 042
     Dates: start: 20040201, end: 20040201
  3. NICOTINE [Concomitant]
  4. PREDNISOLONE [Concomitant]
  5. ACETAMINOPHEN [Concomitant]
  6. PIRITON (CHLORPHENIRAMINE MALEATE) [Concomitant]

REACTIONS (4)
  - CALCINOSIS [None]
  - MALIGNANT OMENTUM NEOPLASM [None]
  - OVARIAN CANCER METASTATIC [None]
  - PLEURAL EFFUSION [None]
